FAERS Safety Report 9632483 (Version 1)
Quarter: 2013Q4

REPORT INFORMATION
  Report Type: Report from Study
  Country: PR (occurrence: PR)
  Receive Date: 20131018
  Receipt Date: 20131018
  Transmission Date: 20140711
  Serious: Yes (Other)
  Sender: FDA-Public Use
  Company Number: PR-ABBVIE-13P-131-1157696-00

PATIENT
  Sex: Female
  Weight: 54.48 kg

DRUGS (9)
  1. HUMIRA [Suspect]
     Indication: RHEUMATOID ARTHRITIS
     Route: 058
     Dates: start: 2008, end: 20130909
  2. HUMIRA [Suspect]
     Route: 058
     Dates: start: 20131001
  3. INDAPAMIDE [Concomitant]
     Indication: HYPERTENSION
     Route: 048
  4. LOSARTAN [Concomitant]
     Indication: HYPERTENSION
     Route: 048
  5. SIMVASTATINA [Concomitant]
     Indication: BLOOD CHOLESTEROL
     Route: 048
  6. VOLTAREN [Concomitant]
     Indication: RHEUMATOID ARTHRITIS
     Route: 048
  7. FOLIC ACID [Concomitant]
     Indication: VITAMIN SUPPLEMENTATION
     Route: 048
  8. MULTIVITAMIN [Concomitant]
     Indication: VITAMIN SUPPLEMENTATION
     Route: 048
  9. PREMPRO [Concomitant]
     Indication: SUPPLEMENTATION THERAPY
     Route: 048

REACTIONS (1)
  - Hernia [Recovered/Resolved]
